FAERS Safety Report 17054884 (Version 5)
Quarter: 2020Q1

REPORT INFORMATION
  Report Type: Spontaneous
  Country: US (occurrence: US)
  Receive Date: 20191120
  Receipt Date: 20200306
  Transmission Date: 20200409
  Serious: Yes (Other)
  Sender: FDA-Public Use
  Company Number: US-SA-2019SA316628

PATIENT
  Age: 71 Year
  Sex: Female
  Weight: 81 kg

DRUGS (20)
  1. VITAMIN B2 [Concomitant]
     Active Substance: RIBOFLAVIN
  2. TOPIRAMATE. [Concomitant]
     Active Substance: TOPIRAMATE
  3. MAGNESIUM [Concomitant]
     Active Substance: MAGNESIUM
  4. NITROFURANTOIN. [Concomitant]
     Active Substance: NITROFURANTOIN
  5. NEXIUM [Concomitant]
     Active Substance: ESOMEPRAZOLE MAGNESIUM
  6. LOSARTAN POTASSIUM. [Concomitant]
     Active Substance: LOSARTAN POTASSIUM
  7. LANTUS [Concomitant]
     Active Substance: INSULIN GLARGINE
  8. PRALUENT [Suspect]
     Active Substance: ALIROCUMAB
     Indication: HYPERLIPIDAEMIA
  9. ASPIRIN 81 [Concomitant]
     Active Substance: ASPIRIN
  10. ZOFRAN [Concomitant]
     Active Substance: ONDANSETRON HYDROCHLORIDE
  11. HUMALOG JUNIOR KWIKPEN [Concomitant]
     Active Substance: INSULIN LISPRO
  12. METFORMIN HCL [Concomitant]
     Active Substance: METFORMIN HYDROCHLORIDE
     Dosage: UNK UNK, UNK
  13. PRALUENT [Suspect]
     Active Substance: ALIROCUMAB
     Indication: TYPE IIA HYPERLIPIDAEMIA
     Dosage: 75 MG/ML, QOW
     Route: 058
     Dates: start: 20160205
  14. PRALUENT [Suspect]
     Active Substance: ALIROCUMAB
     Indication: ARTERIOSCLEROSIS
  15. METOCLOPRAMIDE HCL [Concomitant]
     Active Substance: METOCLOPRAMIDE HYDROCHLORIDE
     Dosage: 10 MG AND 1000 MG TABLETS
  16. PROBIOTICS NOS [Concomitant]
     Active Substance: PROBIOTICS NOS
  17. LOVAZA [Concomitant]
     Active Substance: OMEGA-3-ACID ETHYL ESTERS
  18. ZETIA [Concomitant]
     Active Substance: EZETIMIBE
  19. COENZYME Q10 [Concomitant]
     Active Substance: UBIDECARENONE
     Dosage: 5 DF
  20. EFFIENT [Concomitant]
     Active Substance: PRASUGREL HYDROCHLORIDE

REACTIONS (9)
  - Nervousness [Unknown]
  - Basal cell carcinoma [Unknown]
  - Thyroid mass [Unknown]
  - Breast cancer [Unknown]
  - Coronary artery occlusion [Unknown]
  - Malaise [Unknown]
  - Extra dose administered [Unknown]
  - Breast calcifications [Unknown]
  - Coronary arterial stent insertion [Unknown]

NARRATIVE: CASE EVENT DATE: 20180903
